FAERS Safety Report 15787554 (Version 4)
Quarter: 2019Q2

REPORT INFORMATION
  Report Type: Spontaneous
  Country: US (occurrence: US)
  Receive Date: 20190103
  Receipt Date: 20190410
  Transmission Date: 20190711
  Serious: No
  Sender: FDA-Public Use
  Company Number: US-PFIZER INC-2019002459

PATIENT
  Age: 61 Year
  Sex: Female
  Weight: 75 kg

DRUGS (2)
  1. DETROL LA [Suspect]
     Active Substance: TOLTERODINE TARTRATE
     Indication: INCONTINENCE
  2. DETROL LA [Suspect]
     Active Substance: TOLTERODINE TARTRATE
     Indication: HYPERTONIC BLADDER
     Dosage: 4 MG, 1X/DAY [1 CAPSULE ONCE A DAY]
     Route: 048
     Dates: start: 2001, end: 201901

REACTIONS (1)
  - Drug ineffective [Unknown]
